FAERS Safety Report 16893857 (Version 1)
Quarter: 2019Q4

REPORT INFORMATION
  Report Type: Spontaneous
  Country: US (occurrence: US)
  Receive Date: 20191007
  Receipt Date: 20191007
  Transmission Date: 20200122
  Serious: Yes (Disabling)
  Sender: FDA-Public Use
  Company Number: None

PATIENT
  Age: 38 Year
  Sex: Female
  Weight: 92.99 kg

DRUGS (1)
  1. MIRENA [Suspect]
     Active Substance: LEVONORGESTREL

REACTIONS (19)
  - Depression [None]
  - Arthralgia [None]
  - Back pain [None]
  - Choking [None]
  - Anxiety [None]
  - Anger [None]
  - Non-consummation [None]
  - Bacterial vaginosis [None]
  - Weight increased [None]
  - Irritability [None]
  - Urinary incontinence [None]
  - Haemorrhage [None]
  - Headache [None]
  - Neck pain [None]
  - Dizziness [None]
  - Cough [None]
  - Apathy [None]
  - Lethargy [None]
  - Visual impairment [None]

NARRATIVE: CASE EVENT DATE: 20190108
